FAERS Safety Report 10681423 (Version 2)
Quarter: 2014Q4

REPORT INFORMATION
  Report Type: Spontaneous
  Country: US (occurrence: US)
  Receive Date: 20141230
  Receipt Date: 20141230
  Transmission Date: 20150529
  Serious: No
  Sender: FDA-Public Use
  Company Number: US-DRREDDYS-USA/USA/14/0043704

PATIENT
  Age: 18 Year
  Sex: Male
  Weight: 90 kg

DRUGS (4)
  1. DIVALPROEX SODIUM. [Suspect]
     Active Substance: DIVALPROEX SODIUM
     Route: 065
  2. DIVALPROEX SODIUM EXTENDED RELEASE TABLETS 500 MG [Suspect]
     Active Substance: DIVALPROEX SODIUM
     Indication: JUVENILE MYOCLONIC EPILEPSY
     Route: 048
     Dates: end: 20141015
  3. DIVALPROEX SODIUM. [Suspect]
     Active Substance: DIVALPROEX SODIUM
     Indication: JUVENILE MYOCLONIC EPILEPSY
     Route: 065
     Dates: end: 20141015
  4. DIVALPROEX SODIUM EXTENDED RELEASE TABLETS 500 MG [Suspect]
     Active Substance: DIVALPROEX SODIUM
     Route: 048

REACTIONS (2)
  - Drug ineffective [Unknown]
  - Product quality issue [Unknown]
